FAERS Safety Report 24628552 (Version 3)
Quarter: 2025Q2

REPORT INFORMATION
  Report Type: Report from Study
  Country: US (occurrence: US)
  Receive Date: 20241117
  Receipt Date: 20250617
  Transmission Date: 20250716
  Serious: No
  Sender: ABBVIE
  Company Number: US-ABBVIE-6001405

PATIENT
  Sex: Male
  Weight: 102.9 kg

DRUGS (3)
  1. SKYRIZI [Suspect]
     Active Substance: RISANKIZUMAB-RZAA
     Indication: Psoriasis
     Dosage: STRENGTH 150MG
     Route: 058
     Dates: start: 2022
  2. SKYRIZI [Suspect]
     Active Substance: RISANKIZUMAB-RZAA
     Route: 058
  3. FLUOCINONIDE [Concomitant]
     Active Substance: FLUOCINONIDE
     Indication: Skin disorder
     Route: 061

REACTIONS (4)
  - Hypoacusis [Not Recovered/Not Resolved]
  - Visual impairment [Recovering/Resolving]
  - Nasopharyngitis [Unknown]
  - Headache [Recovered/Resolved]
